FAERS Safety Report 9172247 (Version 1)
Quarter: 2013Q1

REPORT INFORMATION
  Report Type: Spontaneous
  Country: US (occurrence: US)
  Receive Date: 20130319
  Receipt Date: 20130319
  Transmission Date: 20140127
  Serious: No
  Sender: FDA-Public Use
  Company Number: US-ASTRAZENECA-2013SE11774

PATIENT
  Age: 33 Year
  Sex: Male
  Weight: 70.3 kg

DRUGS (3)
  1. CRESTOR [Suspect]
     Indication: BLOOD CHOLESTEROL INCREASED
     Route: 048
     Dates: start: 2011, end: 201202
  2. NIACIN [Concomitant]
     Indication: BLOOD CHOLESTEROL ABNORMAL
  3. BABY ASPIRIN [Concomitant]

REACTIONS (3)
  - Back disorder [Unknown]
  - Hepatic enzyme increased [Unknown]
  - Off label use [Unknown]
